FAERS Safety Report 5749227-7 (Version None)
Quarter: 2008Q2

REPORT INFORMATION
  Report Type: 
  Country: None (occurrence: None)
  Receive Date: 20080521
  Receipt Date: 20080521
  Transmission Date: 20081010
  Serious: Yes (Life-Threatening, Hospitalization)
  Sender: FDA-Public Use
  Company Number: None

PATIENT
  Age: 64 Year
  Sex: Male
  Weight: 125 kg

DRUGS (21)
  1. FENTANYL [Suspect]
     Indication: PAIN
     Dosage: IV DRIP
     Route: 041
     Dates: start: 20080315, end: 20080318
  2. DIGOXIN [Concomitant]
  3. CEFTRIAXONE [Concomitant]
  4. AZITHROMYCIN [Concomitant]
  5. DILTIAZEM [Concomitant]
  6. HEPARIN [Concomitant]
  7. SOLU-MEDROL [Concomitant]
  8. LISINOPRIL [Concomitant]
  9. LASIX [Concomitant]
  10. PEPCID [Concomitant]
  11. COMBIVENT [Concomitant]
  12. VERSED DRIP [Concomitant]
  13. HALDOL [Concomitant]
  14. DIAZEPAM [Concomitant]
  15. LEVOPHED DRIP [Concomitant]
  16. ATIVAN DRIP [Concomitant]
  17. THIAMINE [Concomitant]
  18. FOLIC ACID [Concomitant]
  19. MULT VITAMIN [Concomitant]
  20. MIRALAX [Concomitant]
  21. DULCOLAX [Concomitant]

REACTIONS (7)
  - ATRIAL FIBRILLATION [None]
  - PSEUDOMONAS INFECTION [None]
  - PYREXIA [None]
  - RESPIRATORY FAILURE [None]
  - SEROTONIN SYNDROME [None]
  - SPUTUM CULTURE POSITIVE [None]
  - THERAPEUTIC PRODUCT CONTAMINATION [None]
